FAERS Safety Report 4501664-4 (Version None)
Quarter: 2004Q4

REPORT INFORMATION
  Report Type: 
  Country: None (occurrence: None)
  Receive Date: 20041109
  Receipt Date: 20041026
  Transmission Date: 20050328
  Serious: Yes (Hospitalization)
  Sender: FDA-Public Use
  Company Number: 2004AP05041

PATIENT
  Age: 51 Year
  Sex: Female

DRUGS (17)
  1. IRESSA [Suspect]
     Indication: OROPHARYNGEAL CANCER STAGE UNSPECIFIED
     Dates: start: 20040603
  2. IRESSA [Suspect]
     Indication: SQUAMOUS CELL CARCINOMA
     Dates: start: 20040603
  3. DURAGESIC [Concomitant]
  4. MORFIN [Concomitant]
  5. ACETAMINOPHEN [Concomitant]
  6. NEURONTIN [Concomitant]
  7. SAROTEN ^BAYER VITAL^ [Concomitant]
  8. LAXOBERAL [Concomitant]
  9. LORABID [Concomitant]
  10. LOSEC [Concomitant]
  11. XYLOCAINE [Concomitant]
  12. DIFLUCAN [Concomitant]
  13. LACTULOSE [Concomitant]
  14. ACETYLCYSTEINE [Concomitant]
  15. FUROSEMIDE [Concomitant]
  16. PANTOPRAZOLE SODIUM [Concomitant]
  17. STILNOCT [Concomitant]

REACTIONS (4)
  - HAEMOGLOBIN DECREASED [None]
  - RED BLOOD CELL COUNT DECREASED [None]
  - TONGUE HAEMORRHAGE [None]
  - WHITE BLOOD CELL COUNT INCREASED [None]
